FAERS Safety Report 18755643 (Version 2)
Quarter: 2021Q1

REPORT INFORMATION
  Report Type: Report from Study
  Country: DE (occurrence: DE)
  Receive Date: 20210119
  Receipt Date: 20210128
  Transmission Date: 20210419
  Serious: Yes (Hospitalization)
  Sender: FDA-Public Use
  Company Number: DE-EXELIXIS-XL18420035031

PATIENT

DRUGS (4)
  1. XL184 [Suspect]
     Active Substance: CABOZANTINIB
     Dosage: UNK
     Dates: start: 20201228
  2. RIOPAN MAGEN GEL [Concomitant]
     Dosage: UNK
  3. XL184 [Suspect]
     Active Substance: CABOZANTINIB
     Indication: RENAL CELL CARCINOMA
     Dosage: 60 MG, QD
     Dates: start: 20200925, end: 20201201
  4. OMEPRAZOL [Concomitant]
     Active Substance: OMEPRAZOLE
     Dosage: UNK

REACTIONS (6)
  - Vertigo [Recovered/Resolved]
  - Nausea [Recovered/Resolved]
  - Colitis [Recovered/Resolved]
  - Abdominal pain upper [Recovered/Resolved]
  - Blister [Recovered/Resolved]
  - Diarrhoea [Recovered/Resolved]

NARRATIVE: CASE EVENT DATE: 20201023
